FAERS Safety Report 16452264 (Version 1)
Quarter: 2019Q2

REPORT INFORMATION
  Report Type: Spontaneous
  Country: US (occurrence: US)
  Receive Date: 20190619
  Receipt Date: 20190619
  Transmission Date: 20190711
  Serious: No
  Sender: FDA-Public Use
  Company Number: US-ROCHE-2268273

PATIENT

DRUGS (9)
  1. REMICADE [Concomitant]
     Active Substance: INFLIXIMAB
  2. ACTEMRA [Suspect]
     Active Substance: TOCILIZUMAB
     Indication: RHEUMATOID ARTHRITIS
     Route: 065
  3. METHOTREXATE. [Concomitant]
     Active Substance: METHOTREXATE
  4. SULFASALAZINE. [Concomitant]
     Active Substance: SULFASALAZINE
  5. ARAVA [Concomitant]
     Active Substance: LEFLUNOMIDE
  6. IMURAN [Concomitant]
     Active Substance: AZATHIOPRINE
  7. XELJANZ XR [Concomitant]
     Active Substance: TOFACITINIB CITRATE
     Route: 048
  8. ENBREL [Concomitant]
     Active Substance: ETANERCEPT
  9. HUMIRA [Concomitant]
     Active Substance: ADALIMUMAB

REACTIONS (1)
  - Hypersensitivity [Unknown]
